FAERS Safety Report 9136327 (Version 1)
Quarter: 2013Q1

REPORT INFORMATION
  Report Type: Spontaneous
  Country: US (occurrence: US)
  Receive Date: 20130304
  Receipt Date: 20130304
  Transmission Date: 20140127
  Serious: No
  Sender: FDA-Public Use
  Company Number: US-ABBOTT-12P-163-0991045-00

PATIENT
  Sex: Male
  Weight: 99.88 kg

DRUGS (5)
  1. ANDROGEL [Suspect]
     Indication: BLOOD TESTOSTERONE DECREASED
     Dosage: 1% PACKETS
     Dates: start: 201209
  2. NOVOLOG INSULIN [Concomitant]
     Indication: DIABETES MELLITUS
     Dosage: 35 TO 40 UNITS PER DAY WITH MEALS
     Dates: start: 1999
  3. NOVOLOG INSULIN [Concomitant]
     Dosage: 70 UNITS PER DAY WITH MEALS
     Dates: start: 20120929
  4. LANTUS INSULIN [Concomitant]
     Indication: DIABETES MELLITUS
     Dates: start: 1999
  5. LANTUS INSULIN [Concomitant]
     Dates: start: 20121002

REACTIONS (1)
  - Increased insulin requirement [Unknown]
